FAERS Safety Report 6327525-6 (Version None)
Quarter: 2009Q3

REPORT INFORMATION
  Report Type: 
  Country: None (occurrence: None)
  Receive Date: 20090825
  Receipt Date: 20090819
  Transmission Date: 20100115
  Serious: Yes (Other)
  Sender: FDA-Public Use
  Company Number: PHEH2009US08633

PATIENT
  Sex: Male
  Weight: 55 kg

DRUGS (4)
  1. ZOMETA [Suspect]
     Indication: METASTASES TO BONE
     Dosage: 4 MG IV MONTHLY
     Dates: start: 20060801
  2. ZOMETA [Suspect]
     Indication: BREAST CANCER STAGE IV
  3. ARIMIDEX [Concomitant]
  4. XANAX [Concomitant]

REACTIONS (3)
  - CLUMSINESS [None]
  - FALL [None]
  - FRACTURE [None]
